FAERS Safety Report 7028838-5 (Version None)
Quarter: 2010Q4

REPORT INFORMATION
  Report Type: 
  Country: None (occurrence: None)
  Receive Date: 20101004
  Receipt Date: 20101004
  Transmission Date: 20110411
  Serious: Yes (Other)
  Sender: FDA-Public Use
  Company Number: None

PATIENT
  Age: 48 Year
  Sex: Female
  Weight: 58.9676 kg

DRUGS (1)
  1. EPIPEN [Suspect]
     Indication: CARDIAC ARREST
     Dosage: 0.3 MG IM
     Route: 030
     Dates: start: 20100929, end: 20100929

REACTIONS (1)
  - DEVICE MALFUNCTION [None]
